FAERS Safety Report 5341546-1 (Version None)
Quarter: 2007Q2

REPORT INFORMATION
  Report Type: 
  Country: None (occurrence: None)
  Receive Date: 20070530
  Receipt Date: 20070524
  Transmission Date: 20071010
  Serious: Yes (Life-Threatening, Other)
  Sender: FDA-Public Use
  Company Number: 2007S1000112

PATIENT
  Age: 2 Day
  Sex: Female
  Weight: 0.6 kg

DRUGS (26)
  1. NITRIC OXIDE [Suspect]
     Indication: LUNG DISORDER
     Dosage: 5 PPM; CONT; INH
     Route: 055
     Dates: start: 20070419, end: 20070510
  2. NITRIC OXIDE [Suspect]
     Indication: PROPHYLAXIS
     Dosage: 5 PPM; CONT; INH
     Route: 055
     Dates: start: 20070419, end: 20070510
  3. AMPICILLIN [Concomitant]
  4. CEFOTAXIME [Concomitant]
  5. LEVOTHYROXINE SODIUM [Concomitant]
  6. NYSTATIN [Concomitant]
  7. HEPARIN [Concomitant]
  8. TOBRAMYCIN SULFATE [Concomitant]
  9. FLUCONAZOLE [Concomitant]
  10. IBUPROFEN [Concomitant]
  11. DESMOPRESSIN [Concomitant]
  12. HYDROCORTISONE [Concomitant]
  13. INDOMETHACIN [Concomitant]
  14. RANITIDINE [Concomitant]
  15. CEFTAZIDIME [Concomitant]
  16. VANCOMYCIN HCL [Concomitant]
  17. METRONIDAZOLE [Concomitant]
  18. INDOMETHACIN [Concomitant]
  19. INDOMETHACIN [Concomitant]
  20. INDOMETHACIN [Concomitant]
  21. DIAZEPAM [Concomitant]
  22. LUMINAL [Concomitant]
  23. MEROPENEM [Concomitant]
  24. TOBRAMYCIN SULFATE [Concomitant]
  25. TEICOPLANIN [Concomitant]
  26. AMPICILLIN [Concomitant]

REACTIONS (5)
  - CATHETER SEPSIS [None]
  - DRUG INEFFECTIVE [None]
  - ENTEROCOCCAL SEPSIS [None]
  - INTRAVENTRICULAR HAEMORRHAGE [None]
  - PATENT DUCTUS ARTERIOSUS [None]
